FAERS Safety Report 21819304 (Version 1)
Quarter: 2023Q1

REPORT INFORMATION
  Report Type: Spontaneous
  Country: US (occurrence: US)
  Receive Date: 20230104
  Receipt Date: 20230104
  Transmission Date: 20230418
  Serious: Yes (Hospitalization, Other)
  Sender: FDA-Public Use
  Company Number: US-AMERICAN REGENT INC-2022003689

PATIENT
  Age: 19 Year
  Sex: Female
  Weight: 70.295 kg

DRUGS (2)
  1. FERRIC CARBOXYMALTOSE [Suspect]
     Active Substance: FERRIC CARBOXYMALTOSE
     Indication: Iron deficiency anaemia
     Dosage: 750 MILLIGRAM, SINGLE
     Route: 042
     Dates: start: 20221219, end: 20221219
  2. SODIUM PHOSPHATE [Suspect]
     Active Substance: SODIUM PHOSPHATE
     Indication: Hypophosphataemia
     Dosage: UNK, SINGLE
     Route: 042
     Dates: start: 202212, end: 202212

REACTIONS (7)
  - Loss of consciousness [Recovered/Resolved]
  - Serum ferritin increased [Unknown]
  - Pain [Unknown]
  - Hypophosphataemia [Not Recovered/Not Resolved]
  - Dyspnoea [Recovered/Resolved]
  - Urticaria [Unknown]
  - Dizziness [Unknown]

NARRATIVE: CASE EVENT DATE: 20221201
